FAERS Safety Report 20813187 (Version 1)
Quarter: 2022Q2

REPORT INFORMATION
  Report Type: Report from Study
  Country: CA (occurrence: CA)
  Receive Date: 20220511
  Receipt Date: 20220511
  Transmission Date: 20220720
  Serious: Yes (Death, Other)
  Sender: FDA-Public Use
  Company Number: CA-BAYER-2022A065009

PATIENT
  Age: 93 Year
  Sex: Male

DRUGS (1)
  1. EYLEA [Suspect]
     Active Substance: AFLIBERCEPT
     Indication: Product used for unknown indication
     Dosage: SOL FOR INJ, DOSE, FREQUENCY AND NUMBER OF INJECTIONS IN TOTAL UNKNOWN

REACTIONS (1)
  - Death [Fatal]
